FAERS Safety Report 14646904 (Version 1)
Quarter: 2018Q1

REPORT INFORMATION
  Report Type: Spontaneous
  Country: IT (occurrence: IT)
  Receive Date: 20180316
  Receipt Date: 20180316
  Transmission Date: 20180509
  Serious: Yes (Hospitalization)
  Sender: FDA-Public Use
  Company Number: IT-009507513-1803ITA006879

PATIENT
  Age: 6 Year
  Sex: Male

DRUGS (4)
  1. FLUTICASONE. [Suspect]
     Active Substance: FLUTICASONE
     Dosage: 200 MICROGRAM, QD
  2. SALMETEROL [Suspect]
     Active Substance: SALMETEROL
     Indication: ASTHMA
     Dosage: 100 MICROGRAM/DAY
  3. MONTELUKAST SODIUM. [Suspect]
     Active Substance: MONTELUKAST SODIUM
     Indication: ASTHMA
     Dosage: 5 MG/DAY
     Route: 048
  4. FLUTICASONE. [Suspect]
     Active Substance: FLUTICASONE
     Indication: ASTHMA
     Dosage: 1000 MICROGRAM, QD

REACTIONS (1)
  - Drug ineffective [Recovered/Resolved]
